FAERS Safety Report 7804474-5 (Version None)
Quarter: 2011Q4

REPORT INFORMATION
  Report Type: 
  Country: None (occurrence: None)
  Receive Date: 20111010
  Receipt Date: 20110927
  Transmission Date: 20120403
  Serious: Yes (Hospitalization)
  Sender: FDA-Public Use
  Company Number: US-BAYER-2011-000115

PATIENT
  Age: 21 Year
  Sex: Female
  Weight: 114.74 kg

DRUGS (23)
  1. YASMIN [Suspect]
  2. LIDOCAINE HYDROCHLORIDE [Concomitant]
     Dosage: EVERY 4 - 6 HOURS
     Route: 048
  3. PROMETHAZINE [Concomitant]
     Dosage: 25 MG, PRN
     Route: 048
  4. CLONAZEPAM [Concomitant]
     Dosage: 1.5 DF, QD
     Route: 048
  5. INDOMETHACIN [Concomitant]
     Dosage: 75 MG, QD
     Route: 048
  6. ZITHROMAX [Concomitant]
     Dosage: TAKE AS DIRECTED ON 1ST AND 15TH OF MONTH
  7. EXCEDRIN (MIGRAINE) [Concomitant]
     Indication: MIGRAINE
     Dosage: UNK
     Dates: start: 20060101
  8. GINGER [Concomitant]
     Dosage: 550 MG, QD
  9. YASMIN [Suspect]
     Indication: CONTRACEPTION
     Dosage: UNK
     Dates: start: 20060101, end: 20071201
  10. FLUOXETINE [Concomitant]
     Indication: DEPRESSION
     Dosage: 3 DF, QD
     Route: 048
     Dates: start: 20060101
  11. MULTI-VITAMIN [Concomitant]
     Dosage: 1 DF, QD
  12. OXYCODONE AND ACETAMINOPHEN [Concomitant]
     Dosage: 5-325 MG, 1 TABLET DAILY
  13. YASMIN [Suspect]
     Indication: PREMENSTRUAL SYNDROME
  14. SIMVASTATIN [Concomitant]
     Indication: BLOOD CHOLESTEROL INCREASED
     Dosage: UNK
     Dates: start: 20040101
  15. ACETAMINOPHEN [Concomitant]
     Dosage: UNK UNK, PRN
     Route: 048
  16. ACETAMINOPHEN AND HYDROCODONE BITARTRATE [Concomitant]
     Dosage: 5-325MG, 1 OR 2 TABLETS EVERY 4-6 HOURS AS NEEDED
  17. VERAPAMIL [Concomitant]
     Dosage: 180 MG, QD
     Route: 048
  18. FIORICET [Concomitant]
     Indication: MIGRAINE
     Dosage: UNK
     Dates: start: 20060101
  19. ASCORBIC ACID [Concomitant]
     Dosage: UNK
     Dates: start: 20050101
  20. BUSPIRONE [Concomitant]
     Indication: ANXIETY
     Dosage: UNK
     Dates: start: 20060101
  21. NORTRIPTYLINE HCL [Concomitant]
     Dosage: 10 MG, QD
     Route: 048
  22. RAMELTEON [Concomitant]
     Dosage: 8 MG, QD
  23. BUDESONIDE [Concomitant]
     Dosage: 4 DF, QD
     Route: 045

REACTIONS (7)
  - PULMONARY EMBOLISM [None]
  - DYSPNOEA [None]
  - CHEST PAIN [None]
  - PAIN [None]
  - ANXIETY [None]
  - FEAR [None]
  - INJURY [None]
